FAERS Safety Report 8170598-9 (Version None)
Quarter: 2012Q1

REPORT INFORMATION
  Report Type: 
  Country: None (occurrence: None)
  Receive Date: 20120228
  Receipt Date: 20120220
  Transmission Date: 20120608
  Serious: Yes (Death, Disabling)
  Sender: FDA-Public Use
  Company Number: FR-ROCHE-1021743

PATIENT
  Age: 65 Year
  Sex: Male

DRUGS (10)
  1. ZOFRAN [Concomitant]
  2. AVASTIN [Suspect]
     Indication: LUNG ADENOCARCINOMA
     Route: 042
     Dates: start: 20110804
  3. VALSARTAN  AND HYDROCHLOROTHIAZIDE [Concomitant]
     Route: 048
  4. GEMZAR [Suspect]
     Indication: LUNG ADENOCARCINOMA
     Route: 065
     Dates: start: 20110804
  5. ALLOPURINOL [Concomitant]
     Route: 048
  6. PLAVIX [Concomitant]
     Route: 048
  7. CARBOPLATIN [Suspect]
     Indication: LUNG ADENOCARCINOMA
     Route: 065
  8. MOTILIUM [Concomitant]
  9. CISPLATIN [Suspect]
     Indication: LUNG ADENOCARCINOMA
     Route: 065
     Dates: start: 20110804
  10. ACETAMINOPHEN [Concomitant]

REACTIONS (2)
  - ANGINA UNSTABLE [None]
  - PERICARDITIS [None]
